FAERS Safety Report 9048857 (Version 1)
Quarter: 2013Q1

REPORT INFORMATION
  Report Type: Spontaneous
  Country: US (occurrence: None)
  Receive Date: 20130130
  Receipt Date: 20130130
  Transmission Date: 20140127
  Serious: Yes (Disabling)
  Sender: FDA-Public Use
  Company Number: None

PATIENT
  Age: 56 Year
  Sex: Male
  Weight: 70.31 kg

DRUGS (13)
  1. AMIKACIN 1600 MG/200 ML BEDFORD [Suspect]
     Indication: ABSCESS
     Dosage: 1600 MG MONDAY, WEDNESDAY, FRIDAY IV
     Route: 042
     Dates: start: 20121211, end: 20130125
  2. TIGECYCLIN E [Concomitant]
  3. ALBUTEROL [Concomitant]
  4. ADVAIR [Concomitant]
  5. SANVA [Concomitant]
  6. AMLODIPINE [Concomitant]
  7. METOPROL TARTRATE [Concomitant]
  8. ASPIRIN [Concomitant]
  9. METFORMIN [Concomitant]
  10. DILAUDID [Concomitant]
  11. OXYCODONE [Concomitant]
  12. GAPAPENTIN [Concomitant]
  13. SIMVASTATIN [Concomitant]

REACTIONS (1)
  - Ototoxicity [None]
